FAERS Safety Report 8909180 (Version 1)
Quarter: 2012Q4

REPORT INFORMATION
  Report Type: Spontaneous
  Country: PT (occurrence: None)
  Receive Date: 20121107
  Receipt Date: 20121107
  Transmission Date: 20130627
  Serious: Yes (Hospitalization)
  Sender: FDA-Public Use
  Company Number: PT-MACLEODS PHARMA-000039

PATIENT
  Age: 81 Year
  Sex: Female

DRUGS (9)
  1. LEVOFLOXACIN [Suspect]
     Indication: RESPIRATORY INFECTION
  2. RAMIPRIL(RAMIPRIL) [Concomitant]
  3. PARACETAMOL W/TRAMADOL(PARACETAMOL W/TRAMADOL) [Concomitant]
  4. INSULIN(INSULIN) [Concomitant]
  5. ASPIRIN(ASPIRIN) [Concomitant]
  6. FUROSEMIDE(FUROSEMIDE) [Concomitant]
  7. LACTULOSE(LACTULOSE) [Concomitant]
  8. PANTOPRAZOLE(PANTOPRAZOLE) [Concomitant]
  9. SIMVASTATIN(SIMVASTATIN) [Concomitant]

REACTIONS (7)
  - Cholestasis [None]
  - Nausea [None]
  - Vomiting [None]
  - Varicose vein [None]
  - Blood pressure systolic increased [None]
  - Biloma [None]
  - Hepatotoxicity [None]
